FAERS Safety Report 8033328-7 (Version None)
Quarter: 2012Q1

REPORT INFORMATION
  Report Type: 
  Country: None (occurrence: None)
  Receive Date: 20120110
  Receipt Date: 20120105
  Transmission Date: 20120608
  Serious: Yes (Other)
  Sender: FDA-Public Use
  Company Number: DE-JNJFOC-20120101481

PATIENT
  Age: 64 Year
  Sex: Male

DRUGS (1)
  1. REMICADE [Suspect]
     Indication: POLYCHONDRITIS
     Route: 042
     Dates: start: 20050101

REACTIONS (7)
  - EXTRASYSTOLES [None]
  - HAEMOPTYSIS [None]
  - LUNG DISORDER [None]
  - NASOPHARYNGITIS [None]
  - FATIGUE [None]
  - LETHARGY [None]
  - HEADACHE [None]
